FAERS Safety Report 16275015 (Version 1)
Quarter: 2019Q2

REPORT INFORMATION
  Report Type: Spontaneous
  Country: CH (occurrence: CH)
  Receive Date: 20190506
  Receipt Date: 20190506
  Transmission Date: 20190711
  Serious: Yes (Other)
  Sender: FDA-Public Use
  Company Number: CH-ELI_LILLY_AND_COMPANY-CH201904002463

PATIENT
  Age: 51 Year
  Sex: Female

DRUGS (2)
  1. TRESIBA [Suspect]
     Active Substance: INSULIN DEGLUDEC
     Indication: TYPE 1 DIABETES MELLITUS
     Dosage: UNK, UNKNOWN
     Route: 065
  2. HUMALOG [Suspect]
     Active Substance: INSULIN LISPRO
     Indication: TYPE 1 DIABETES MELLITUS
     Dosage: UNK, PRN
     Route: 058

REACTIONS (8)
  - Suicidal ideation [Unknown]
  - Irritable bowel syndrome [Unknown]
  - Myalgia [Unknown]
  - Drug intolerance [Unknown]
  - Glycosylated haemoglobin increased [Unknown]
  - Food intolerance [Unknown]
  - Inflammatory marker increased [Unknown]
  - Myalgia [Unknown]

NARRATIVE: CASE EVENT DATE: 2015
